FAERS Safety Report 8385990-7 (Version None)
Quarter: 2012Q2

REPORT INFORMATION
  Report Type: 
  Country: None (occurrence: None)
  Receive Date: 20120525
  Receipt Date: 20120511
  Transmission Date: 20120825
  Serious: Yes (Other)
  Sender: FDA-Public Use
  Company Number: US-RANBAXY-2012RR-56720

PATIENT
  Age: 52 Year
  Sex: Female

DRUGS (9)
  1. PRAVASTATIN [Concomitant]
     Dosage: UNK
     Route: 048
  2. TRICOR [Suspect]
     Indication: BLOOD CHOLESTEROL INCREASED
     Dosage: UNK
     Route: 065
     Dates: end: 20110701
  3. LOVAZA [Suspect]
     Indication: BLOOD CHOLESTEROL INCREASED
     Dosage: 2 DF, BID
     Route: 048
  4. LOVAZA [Suspect]
     Indication: BLOOD TRIGLYCERIDES INCREASED
  5. PRAVASTATIN [Suspect]
     Indication: BLOOD CHOLESTEROL INCREASED
     Dosage: DAILY
     Route: 048
     Dates: start: 20110701
  6. PREMARIN [Suspect]
     Indication: BLOOD OESTROGEN DECREASED
     Dosage: 0.625 MG/G DAILY 3 WKS ON 1 WK OFF
     Route: 067
     Dates: start: 20120201
  7. PREMARIN [Concomitant]
     Dosage: UNTIL 2012, DURING THE OFF THERAPY OF CONJUGATED ESTROGENS CREAM
     Route: 048
     Dates: start: 20120101
  8. PREMARIN [Concomitant]
  9. PREMARIN [Suspect]
     Indication: MENOPAUSE

REACTIONS (10)
  - PRODUCT PHYSICAL ISSUE [None]
  - ARTHRALGIA [None]
  - HEPATIC ENZYME INCREASED [None]
  - CHROMATURIA [None]
  - PAIN IN EXTREMITY [None]
  - LIVER DISORDER [None]
  - DYSURIA [None]
  - BACK PAIN [None]
  - PRODUCT ADHESION ISSUE [None]
  - ACTIVITIES OF DAILY LIVING IMPAIRED [None]
